FAERS Safety Report 20809735 (Version 1)
Quarter: 2022Q2

REPORT INFORMATION
  Report Type: Spontaneous
  Country: CA (occurrence: CA)
  Receive Date: 20220510
  Receipt Date: 20220510
  Transmission Date: 20220721
  Serious: Yes (Hospitalization)
  Sender: FDA-Public Use
  Company Number: None

PATIENT
  Age: 71 Year
  Sex: Female
  Weight: 52 kg

DRUGS (21)
  1. MITOMYCIN [Suspect]
     Active Substance: MITOMYCIN
     Indication: Hyperthermic chemotherapy
     Dosage: INJECTION
     Route: 043
  2. OXALIPLATIN [Suspect]
     Active Substance: OXALIPLATIN
     Indication: Hyperthermic chemotherapy
  3. ACETAMINOPHEN [Concomitant]
     Active Substance: ACETAMINOPHEN
  4. BENZOCAINE [Concomitant]
     Active Substance: BENZOCAINE
  5. BUPIVACAINE [Concomitant]
     Active Substance: BUPIVACAINE
     Dosage: BLOCK/INFILTRATION
  6. CLONAZEPAM [Concomitant]
     Active Substance: CLONAZEPAM
  7. DIMENHYDRINATE [Concomitant]
     Active Substance: DIMENHYDRINATE
     Route: 042
  8. GRANULOCYTE COLONY STIMULATING FACT [Concomitant]
     Dosage: SINGLE USE PRE-FILLED SYRINGE
     Route: 042
  9. HEPARIN SODIUM [Concomitant]
     Active Substance: HEPARIN SODIUM
     Route: 042
  10. HYDROMORPHONE [Concomitant]
     Active Substance: HYDROMORPHONE
  11. LANSOPRAZOLE [Concomitant]
     Active Substance: LANSOPRAZOLE
  12. MAGNESIUM SULFATE [Concomitant]
     Active Substance: MAGNESIUM SULFATE
     Route: 042
  13. METOCLOPRAMIDE [Concomitant]
     Active Substance: METOCLOPRAMIDE
  14. MORPHINE [Concomitant]
     Active Substance: MORPHINE
  15. NALOXONE [Concomitant]
     Active Substance: NALOXONE
     Route: 030
  16. NOREPINEPHRINE [Concomitant]
     Active Substance: NOREPINEPHRINE
     Route: 042
  17. NUBAIN [Concomitant]
     Active Substance: NALBUPHINE HYDROCHLORIDE
     Dosage: INJECTION
     Route: 030
  18. ONDANSETRON [Concomitant]
     Active Substance: ONDANSETRON
  19. PHYTONADIONE [Concomitant]
     Active Substance: PHYTONADIONE
  20. POTASSIUM CHLORIDE [Concomitant]
     Active Substance: POTASSIUM CHLORIDE
     Route: 042
  21. POTASSIUM PHOSPHATES [Concomitant]
     Active Substance: POTASSIUM PHOSPHATE, DIBASIC\POTASSIUM PHOSPHATE, MONOBASIC
     Dosage: INJECTION
     Route: 042

REACTIONS (3)
  - Escherichia urinary tract infection [Recovered/Resolved]
  - Febrile neutropenia [Recovered/Resolved]
  - Off label use [Unknown]
